FAERS Safety Report 5381520-2 (Version None)
Quarter: 2007Q3

REPORT INFORMATION
  Report Type: 
  Country: None (occurrence: None)
  Receive Date: 20070709
  Receipt Date: 20070626
  Transmission Date: 20080115
  Serious: Yes (Death, Other)
  Sender: FDA-Public Use
  Company Number: BE-PFIZER INC-2007052766

PATIENT
  Age: 71 Year
  Sex: Female

DRUGS (5)
  1. METHYLPREDNISOLONE [Suspect]
     Dosage: DAILY DOSE:4MG
  2. PHENPROCOUMON [Concomitant]
  3. DIGOXIN [Concomitant]
  4. BISOPROLOL FUMARATE [Concomitant]
  5. ENALAPRIL MALEATE [Concomitant]

REACTIONS (3)
  - CALCIPHYLAXIS [None]
  - CANDIDA SEPSIS [None]
  - DIARRHOEA [None]
